FAERS Safety Report 16299325 (Version 5)
Quarter: 2021Q1

REPORT INFORMATION
  Report Type: Report from Study
  Country: GB (occurrence: GB)
  Receive Date: 20190510
  Receipt Date: 20210324
  Transmission Date: 20210419
  Serious: Yes (Hospitalization, Other)
  Sender: FDA-Public Use
  Company Number: GB-PFIZER INC-2019194204

PATIENT
  Age: 35 Year
  Sex: Female

DRUGS (30)
  1. ERIBULIN MESYLATE [Suspect]
     Active Substance: ERIBULIN MESYLATE
     Indication: BREAST CANCER METASTATIC
     Dosage: 1.23 MG/M2, EVERY 3 WEEKS
     Route: 042
     Dates: start: 20190516, end: 20190516
  2. DENOSUMAB [Suspect]
     Active Substance: DENOSUMAB
     Indication: METASTASES TO BONE
     Dosage: 120 MG, EVERY 3 WEEKS
     Route: 042
     Dates: start: 20160721
  3. OXYCODONE [Concomitant]
     Active Substance: OXYCODONE
     Indication: ABDOMINAL PAIN
     Dosage: 10 MG
     Route: 058
  4. DEXAMETHASONE. [Concomitant]
     Active Substance: DEXAMETHASONE
     Indication: ABDOMINAL PAIN
     Dosage: 6 MG, 1X/DAY
     Route: 048
     Dates: start: 20201215
  5. CAPECITABINE. [Suspect]
     Active Substance: CAPECITABINE
     Indication: BREAST CANCER METASTATIC
     Dosage: 1950 MG, 2X/DAY (FREQ: 0.5/D)
     Route: 048
     Dates: start: 20180905, end: 20190327
  6. SODIUM CHLORIDE. [Concomitant]
     Active Substance: SODIUM CHLORIDE
     Indication: ABDOMINAL PAIN
     Dosage: 0.9 %
     Route: 042
     Dates: start: 20201215
  7. DOCUSATE [Concomitant]
     Active Substance: DOCUSATE
     Indication: ABDOMINAL PAIN
     Dosage: 200 MG, 2X/DAY (FREQ: 0.5/D)
     Route: 048
     Dates: start: 20201215
  8. SALBUTAMOL [Concomitant]
     Active Substance: ALBUTEROL
     Indication: DYSPNOEA
     Dosage: 100 UG, 4X/DAY (0.25/D)
     Route: 055
  9. EPIRUBICIN [Concomitant]
     Active Substance: EPIRUBICIN
     Indication: BREAST CANCER METASTATIC
     Dosage: 22.5 MG/M2, WEEKLY
     Route: 042
     Dates: start: 20200512, end: 20200820
  10. DOCETAXEL. [Suspect]
     Active Substance: DOCETAXEL
     Dosage: 190 MG, EVERY 3 WEEKS (DOSE DISCONTINUED AS PLANNED NUMBER OF CYCLES COMPLETED )
     Route: 042
     Dates: start: 20160902, end: 20161115
  11. TRASTUZUMAB EMTANSINE [Suspect]
     Active Substance: ADO-TRASTUZUMAB EMTANSINE
     Indication: BREAST CANCER METASTATIC
     Dosage: 3.6 MG/M2, EVERY 3 WEEKS
     Route: 042
     Dates: start: 20171212, end: 20180817
  12. AMLODIPINE [Concomitant]
     Active Substance: AMLODIPINE BESYLATE
     Indication: ABDOMINAL PAIN
     Dosage: 5 MG, 1X/DAY
     Route: 048
     Dates: start: 20201217
  13. GLYCOPYRRONIUM [Concomitant]
     Active Substance: GLYCOPYRRONIUM
     Indication: DYSPNOEA
     Dosage: 200 MG
     Route: 058
  14. TRASTUZUMAB. [Suspect]
     Active Substance: TRASTUZUMAB
     Dosage: 441 MG, EVERY 3 WEEKS
     Route: 042
     Dates: start: 20161115, end: 20171116
  15. BENZYDAMINE [Concomitant]
     Active Substance: BENZYDAMINE
     Dosage: 0.15 %, 4X/DAY (FREQ: 0.25/D)
     Route: 048
  16. LANSOPRAZOLE. [Concomitant]
     Active Substance: LANSOPRAZOLE
     Indication: ABDOMINAL PAIN
     Dosage: 30 MG, 1X/DAY
     Route: 048
     Dates: start: 20201215
  17. DOCETAXEL. [Suspect]
     Active Substance: DOCETAXEL
     Dosage: 140 MG, EVERY 3 WEEKS (DISCONTINUED DUE TO MUSCULOSKELETAL SYMPTOMS)
     Route: 042
     Dates: start: 20160812, end: 20160812
  18. PERTUZUMAB. [Suspect]
     Active Substance: PERTUZUMAB
     Indication: BREAST CANCER METASTATIC
     Dosage: 420 MG, EVERY 3 WEEKS (MAINTENANCE DOSE)
     Route: 042
     Dates: start: 20160811
  19. VENLAFAXINE [Concomitant]
     Active Substance: VENLAFAXINE HYDROCHLORIDE
     Indication: ABDOMINAL PAIN
     Dosage: 75 MG, 2X/DAY (FREQ: 0.5/D)
     Route: 048
     Dates: start: 20201215
  20. TRASTUZUMAB. [Suspect]
     Active Substance: TRASTUZUMAB
     Indication: BREAST CANCER METASTATIC
     Dosage: 420 MG, EVERY 3 WEEKS (DOSE MODIFIED AS ACCOUNT FOR WEIGHT CHANGE)
     Route: 041
     Dates: start: 20160812, end: 20161017
  21. TRASTUZUMAB. [Suspect]
     Active Substance: TRASTUZUMAB
     Dosage: 567 MG, SINGLE (SINGLE LOADING DOSE MODIFIED AS SWITCHED TO MAINTENANCE DOSE )
     Route: 042
     Dates: start: 20160722, end: 20160722
  22. LORAZEPAM. [Concomitant]
     Active Substance: LORAZEPAM
     Indication: ABDOMINAL PAIN
     Dosage: 1 MG, 1X/DAY
     Route: 048
     Dates: start: 20201215
  23. CLOTRIMAZOLE. [Concomitant]
     Active Substance: CLOTRIMAZOLE
     Indication: ABDOMINAL PAIN
     Dosage: 1 %
     Route: 061
     Dates: start: 20201216
  24. PERTUZUMAB. [Suspect]
     Active Substance: PERTUZUMAB
     Dosage: 840 MG, SINGLE (LOADING DOSE MODIFIED AS SWITCHED TO MAINTENANCE DOSE )
     Route: 042
     Dates: start: 20160721, end: 20160721
  25. HALOPERIDOL. [Concomitant]
     Active Substance: HALOPERIDOL
     Indication: ABDOMINAL PAIN
     Dosage: 0.5 MG
     Route: 058
  26. BECLOMETASONE [Concomitant]
     Active Substance: BECLOMETHASONE DIPROPIONATE
     Dosage: 200 MG, 2X/DAY (FREQ: 0.5/D)
     Route: 055
  27. GABAPENTIN. [Concomitant]
     Active Substance: GABAPENTIN
     Indication: ABDOMINAL PAIN
     Dosage: 400 MG 0.33/D
     Route: 048
     Dates: start: 20201215
  28. DOCETAXEL. [Suspect]
     Active Substance: DOCETAXEL
     Indication: BREAST CANCER METASTATIC
     Dosage: 105 MG, EVERY 3 WEEKS (DOSE MODIFIED DUE TO MUSCULOSKELETAL SYMPTOMS)
     Route: 042
     Dates: start: 20160723, end: 20160723
  29. MIDAZOLAM. [Concomitant]
     Active Substance: MIDAZOLAM
     Indication: ABDOMINAL PAIN
     Dosage: 2.5 MG
     Route: 058
  30. LEVOMEPROMAZINE [Concomitant]
     Active Substance: LEVOMEPROMAZINE
     Indication: ABDOMINAL PAIN
     Dosage: 3.13 MG
     Route: 058

REACTIONS (3)
  - Pyrexia [Recovered/Resolved]
  - Pyrexia [Recovered/Resolved]
  - Headache [Recovered/Resolved]

NARRATIVE: CASE EVENT DATE: 20190113
